FAERS Safety Report 10165794 (Version 1)
Quarter: 2014Q2

REPORT INFORMATION
  Report Type: Spontaneous
  Country: US (occurrence: US)
  Receive Date: 20140510
  Receipt Date: 20140510
  Transmission Date: 20141212
  Serious: No
  Sender: FDA-Public Use
  Company Number: US-BRISTOL-MYERS SQUIBB COMPANY-19937093

PATIENT
  Age: 83 Year
  Sex: Male
  Weight: 92.51 kg

DRUGS (2)
  1. BYDUREON [Suspect]
     Indication: TYPE 2 DIABETES MELLITUS
     Dosage: LAST INJECTION ON 2013
     Route: 058
     Dates: start: 2012
  2. INSULIN [Suspect]
     Indication: BLOOD GLUCOSE INCREASED

REACTIONS (1)
  - Drug ineffective [Unknown]
